FAERS Safety Report 22092515 (Version 1)
Quarter: 2023Q1

REPORT INFORMATION
  Report Type: Spontaneous
  Country: US (occurrence: US)
  Receive Date: 20230314
  Receipt Date: 20230314
  Transmission Date: 20230418
  Serious: No
  Sender: FDA-Public Use
  Company Number: US-AMGEN-USASP2023041164

PATIENT
  Age: 58 Year
  Sex: Male

DRUGS (3)
  1. RITUXIMAB [Suspect]
     Active Substance: RITUXIMAB
     Indication: Basedow^s disease
     Dosage: UNK
     Route: 042
  2. HYALURONIDASE [Concomitant]
     Active Substance: HYALURONIDASE
     Indication: Basedow^s disease
     Dosage: UNK
     Route: 026
  3. GABAPENTIN [Concomitant]
     Active Substance: GABAPENTIN
     Indication: Basedow^s disease
     Dosage: UNK
     Route: 048

REACTIONS (1)
  - Off label use [Unknown]
